FAERS Safety Report 20472146 (Version 2)
Quarter: 2022Q1

REPORT INFORMATION
  Report Type: Report from Study
  Country: US (occurrence: US)
  Receive Date: 20220214
  Receipt Date: 20220222
  Transmission Date: 20220423
  Serious: Yes (Life-Threatening, Hospitalization, Other)
  Sender: FDA-Public Use
  Company Number: US-BRISTOL-MYERS SQUIBB COMPANY-BMS-2022-021893

PATIENT
  Age: 65 Year
  Sex: Male

DRUGS (2)
  1. NIVOLUMAB [Suspect]
     Active Substance: NIVOLUMAB
     Indication: Oropharyngeal squamous cell carcinoma
     Dosage: UNK
     Route: 065
     Dates: end: 20220103
  2. IPILIMUMAB [Suspect]
     Active Substance: IPILIMUMAB
     Indication: Oropharyngeal squamous cell carcinoma
     Dosage: UNK
     Route: 065
     Dates: end: 20220103

REACTIONS (3)
  - Sepsis [Unknown]
  - Adrenal insufficiency [Recovered/Resolved]
  - Hypothyroidism [Unknown]

NARRATIVE: CASE EVENT DATE: 20220210
